FAERS Safety Report 4545160-7 (Version None)
Quarter: 2005Q1

REPORT INFORMATION
  Report Type: 
  Country: None (occurrence: None)
  Receive Date: 20050103
  Receipt Date: 20050103
  Transmission Date: 20050727
  Serious: Yes (Death)
  Sender: FDA-Public Use
  Company Number: None

PATIENT
  Age: 58 Year
  Sex: Male
  Weight: 234.5 kg

DRUGS (2)
  1. GM CSF [Suspect]
     Indication: MALIGNANT MELANOMA
     Dosage: 125 MG/M2 X 14 D SQ
     Route: 058
     Dates: start: 20040327, end: 20041224
  2. THALIDOMIDE [Suspect]
     Indication: MALIGNANT MELANOMA
     Dosage: 200 MG QD PO X 28 D
     Route: 048
     Dates: start: 20040327, end: 20041229

REACTIONS (1)
  - MYOCARDIAL INFARCTION [None]
